FAERS Safety Report 5213488-3 (Version None)
Quarter: 2007Q1

REPORT INFORMATION
  Report Type: 
  Country: None (occurrence: None)
  Receive Date: 20070119
  Receipt Date: 20070111
  Transmission Date: 20070707
  Serious: Yes (Other)
  Sender: FDA-Public Use
  Company Number: BW-BRISTOL-MYERS SQUIBB COMPANY-13639414

PATIENT
  Age: 11 Year
  Sex: Female

DRUGS (7)
  1. STAVUDINE [Suspect]
     Indication: HIV INFECTION
     Route: 048
     Dates: start: 20060922
  2. LAMIVUDINE [Suspect]
     Indication: HIV INFECTION
     Route: 048
     Dates: start: 20060922
  3. KALETRA [Suspect]
     Indication: HIV INFECTION
     Dosage: FROM 266/66 MG TWICE DAILY TO 480/66 MG TWICE DAILY
     Route: 048
     Dates: start: 20060922
  4. COTRIM D.S. [Concomitant]
     Indication: ANTIFUNGAL PROPHYLAXIS
     Dates: start: 20060901
  5. RIFAMPICIN [Concomitant]
     Indication: TUBERCULOSIS
     Dates: start: 20060918
  6. PYRAZINAMIDE [Concomitant]
     Indication: TUBERCULOSIS
     Dates: start: 20060918
  7. ISONIAZID [Concomitant]
     Indication: TUBERCULOSIS
     Dates: start: 20060918

REACTIONS (7)
  - ABDOMINAL PAIN UPPER [None]
  - ASPARTATE AMINOTRANSFERASE INCREASED [None]
  - BILIRUBIN CONJUGATED INCREASED [None]
  - BLOOD ALKALINE PHOSPHATASE INCREASED [None]
  - HEPATOMEGALY [None]
  - JAUNDICE [None]
  - VOMITING [None]
